FAERS Safety Report 15679239 (Version 1)
Quarter: 2018Q4

REPORT INFORMATION
  Report Type: Spontaneous
  Country: US (occurrence: US)
  Receive Date: 20181203
  Receipt Date: 20181203
  Transmission Date: 20190205
  Serious: No
  Sender: FDA-Public Use
  Company Number: US-LUPIN PHARMACEUTICALS INC.-2017-06683

PATIENT
  Age: 81 Year
  Sex: Female
  Weight: 49.89 kg

DRUGS (3)
  1. GAVILAX [Suspect]
     Active Substance: POLYETHYLENE GLYCOL 3350
     Indication: BOWEL PREPARATION
     Dosage: 17 G, QD
     Route: 048
     Dates: start: 20171019
  2. NEURONTIN [Concomitant]
     Active Substance: GABAPENTIN
     Indication: POST HERPETIC NEURALGIA
     Dosage: UNK
     Route: 065
  3. GAVILAX [Suspect]
     Active Substance: POLYETHYLENE GLYCOL 3350
     Dosage: UNK UNK, BID
     Route: 048
     Dates: start: 20171026, end: 20171108

REACTIONS (6)
  - Bowel movement irregularity [Not Recovered/Not Resolved]
  - Flatulence [Recovered/Resolved]
  - Gastrointestinal sounds abnormal [Recovered/Resolved]
  - Drug ineffective [Not Recovered/Not Resolved]
  - Product use issue [Unknown]
  - Inappropriate schedule of product administration [Unknown]

NARRATIVE: CASE EVENT DATE: 20171019
